FAERS Safety Report 7800176-X (Version None)
Quarter: 2011Q4

REPORT INFORMATION
  Report Type: 
  Country: None (occurrence: None)
  Receive Date: 20111006
  Receipt Date: 20110928
  Transmission Date: 20120403
  Serious: Yes (Hospitalization)
  Sender: FDA-Public Use
  Company Number: US-MERCK-1105USA01168

PATIENT
  Age: 65 Year
  Sex: Female

DRUGS (13)
  1. FOSAMAX [Suspect]
     Indication: OSTEOPOROSIS
     Route: 048
     Dates: start: 19990101, end: 20090101
  2. OMEGA-3 MARINE TRIGLYCERIDES [Concomitant]
     Route: 065
     Dates: start: 20030101, end: 20110601
  3. SELECTIVE ESTROGEN RECEPTOR MODULATOR (UNSPECIFIED) [Concomitant]
     Route: 065
     Dates: start: 20070101, end: 20070101
  4. VITAMIN D (UNSPECIFIED) [Concomitant]
     Route: 065
     Dates: start: 20030101, end: 20110101
  5. ALENDRONATE SODIUM [Suspect]
     Route: 048
  6. LOVAZA [Concomitant]
     Route: 065
     Dates: start: 20030101, end: 20110601
  7. FOSAMAX PLUS D [Suspect]
     Route: 048
  8. FOSAMAX [Suspect]
     Route: 048
  9. FOSAMAX [Suspect]
     Route: 048
     Dates: start: 19880101, end: 20100108
  10. VIACTIV SOFT CALCIUM CHEWS [Concomitant]
     Route: 065
     Dates: start: 20030101, end: 20110601
  11. CITRACAL [Concomitant]
     Route: 065
     Dates: start: 20030101, end: 20110601
  12. VITAMIN E [Concomitant]
     Route: 065
     Dates: start: 20030101, end: 20110601
  13. VITAMINS (UNSPECIFIED) [Concomitant]
     Route: 065
     Dates: start: 19800101, end: 20110601

REACTIONS (8)
  - DIARRHOEA [None]
  - WRIST FRACTURE [None]
  - FEMUR FRACTURE [None]
  - PYREXIA [None]
  - HYPERTENSION [None]
  - FRACTURE [None]
  - DIVERTICULITIS [None]
  - INTERVERTEBRAL DISC DEGENERATION [None]
